FAERS Safety Report 5323936-6 (Version None)
Quarter: 2007Q2

REPORT INFORMATION
  Report Type: 
  Country: None (occurrence: None)
  Receive Date: 20070514
  Receipt Date: 20070502
  Transmission Date: 20071010
  Serious: Yes (Other)
  Sender: FDA-Public Use
  Company Number: US-ASTRAZENECA-2007UW06050

PATIENT
  Age: 602 Month
  Sex: Female

DRUGS (2)
  1. SEROQUEL [Suspect]
     Indication: DEPRESSION
     Dosage: 1-3 TABS PER DAY
     Route: 048
     Dates: start: 20020222, end: 20040223
  2. RISPERDAL [Concomitant]
     Indication: DEPRESSION
     Dates: start: 20011001, end: 20020212

REACTIONS (2)
  - DIABETES MELLITUS NON-INSULIN-DEPENDENT [None]
  - NEUROPATHY [None]
